FAERS Safety Report 21987822 (Version 1)
Quarter: 2023Q1

REPORT INFORMATION
  Report Type: Spontaneous
  Country: CN (occurrence: CN)
  Receive Date: 20230214
  Receipt Date: 20230214
  Transmission Date: 20230418
  Serious: Yes (Other)
  Sender: FDA-Public Use
  Company Number: CN-SUN PHARMACEUTICAL INDUSTRIES LTD-2023R1-378104

PATIENT
  Age: 24 Year
  Sex: Female

DRUGS (3)
  1. METHOTREXATE [Suspect]
     Active Substance: METHOTREXATE
     Indication: Skin ulcer
     Dosage: 10 MILLIGRAM, WEEKLY
     Route: 065
  2. PREDNISONE [Suspect]
     Active Substance: PREDNISONE
     Indication: Skin ulcer
     Dosage: 50 MILLIGRAM, DAILY
     Route: 065
  3. PREDNISONE [Suspect]
     Active Substance: PREDNISONE
     Dosage: 20 MILLIGRAM, DAILY
     Route: 065

REACTIONS (1)
  - Condition aggravated [Unknown]
